FAERS Safety Report 7345760-5 (Version None)
Quarter: 2011Q1

REPORT INFORMATION
  Report Type: 
  Country: None (occurrence: None)
  Receive Date: 20110311
  Receipt Date: 20110303
  Transmission Date: 20110831
  Serious: Yes (Hospitalization, Other)
  Sender: FDA-Public Use
  Company Number: US-BIOGENIDEC-2010BI032671

PATIENT
  Age: 57 Year
  Sex: Female
  Weight: 52 kg

DRUGS (4)
  1. VITAMIN B SUPPLEMENT [Concomitant]
     Indication: VITAMIN B12 DEFICIENCY
  2. TYSABRI [Suspect]
     Indication: MULTIPLE SCLEROSIS
     Route: 042
     Dates: start: 20100623, end: 20101221
  3. VITAMIN B SUPPLEMENT [Concomitant]
     Indication: VITAMIN B6 DEFICIENCY
  4. SIMVASTATIN [Concomitant]
     Indication: HYPERLIPIDAEMIA

REACTIONS (4)
  - EXOPHTHALMOS [None]
  - CONVULSION [None]
  - CARDIAC ARREST [None]
  - MULTIPLE SCLEROSIS [None]
